FAERS Safety Report 18242222 (Version 1)
Quarter: 2020Q3

REPORT INFORMATION
  Report Type: Spontaneous
  Country: DK (occurrence: DK)
  Receive Date: 20200908
  Receipt Date: 20200908
  Transmission Date: 20201103
  Serious: Yes (Death, Life-Threatening, Other)
  Sender: FDA-Public Use
  Company Number: DK-BRISTOL-MYERS SQUIBB COMPANY-BMS-2020-071824

PATIENT
  Age: 82 Year
  Sex: Male

DRUGS (5)
  1. PARACETAMOL [Concomitant]
     Active Substance: ACETAMINOPHEN
     Indication: PAIN
     Dosage: 4000 MILLIGRAM, DAILY
     Route: 048
     Dates: start: 20200424
  2. BUDESONID [Concomitant]
     Active Substance: BUDESONIDE
     Indication: NASAL POLYPS
     Dosage: 2 DOSAGE FORM, DAILY
     Route: 045
     Dates: start: 20181126
  3. ELIQUIS [Suspect]
     Active Substance: APIXABAN
     Indication: CEREBROVASCULAR ACCIDENT PROPHYLAXIS
     Dosage: 10 MILLIGRAM, DAILY
     Route: 048
     Dates: start: 20200427, end: 20200820
  4. METOPROLOL SUCCINATE. [Concomitant]
     Active Substance: METOPROLOL SUCCINATE
     Indication: HEART RATE IRREGULAR
     Dosage: 100 MILLIGRAM, DAILY
     Route: 048
     Dates: start: 20200424
  5. ALFUZOSIN [ALFUZOSIN HYDROCHLORIDE] [Concomitant]
     Indication: DYSURIA
     Dosage: 5 MILLIGRAM, DAILY
     Route: 048
     Dates: start: 20200706

REACTIONS (3)
  - Headache [Unknown]
  - Hemiplegia [Not Recovered/Not Resolved]
  - Haemorrhage intracranial [Fatal]

NARRATIVE: CASE EVENT DATE: 20200820
